FAERS Safety Report 17909581 (Version 1)
Quarter: 2020Q2

REPORT INFORMATION
  Report Type: Report from Study
  Country: None (occurrence: US)
  Receive Date: 20200618
  Receipt Date: 20200618
  Transmission Date: 20200714
  Serious: Yes (Death)
  Sender: FDA-Public Use
  Company Number: US-ABBVIE-20K-163-3448484-00

PATIENT
  Sex: Female
  Weight: 40.86 kg

DRUGS (1)
  1. CREON [Suspect]
     Active Substance: PANCRELIPASE AMYLASE\PANCRELIPASE LIPASE\PANCRELIPASE PROTEASE
     Indication: PANCREATIC CARCINOMA
     Dosage: TWO CAPSULES WITH MEAL AND ONE WITH SNACK
     Route: 048
     Dates: start: 20190627

REACTIONS (2)
  - Underweight [Not Recovered/Not Resolved]
  - Pancreatic carcinoma [Fatal]
